FAERS Safety Report 16113117 (Version 1)
Quarter: 2019Q1

REPORT INFORMATION
  Report Type: Spontaneous
  Country: AT (occurrence: AT)
  Receive Date: 20190325
  Receipt Date: 20190325
  Transmission Date: 20190418
  Serious: Yes (Hospitalization)
  Sender: FDA-Public Use
  Company Number: AT-PFIZER INC-2019121600

PATIENT
  Age: 48 Year
  Sex: Female
  Weight: 90 kg

DRUGS (3)
  1. MEXALEN [Suspect]
     Active Substance: ACETAMINOPHEN
     Dosage: 10 DF, SINGLE
     Route: 048
     Dates: start: 20171010, end: 20171010
  2. XANOR [Suspect]
     Active Substance: ALPRAZOLAM
     Dosage: 10 DF, SINGLE
     Route: 048
     Dates: start: 20171010, end: 20171010
  3. PHENOLEPTIL (FOR DOGS) [Suspect]
     Active Substance: PHENOBARBITAL
     Dosage: 10 DF, SINGLE
     Route: 048
     Dates: start: 20171010, end: 20171010

REACTIONS (3)
  - Visual impairment [Recovered/Resolved]
  - Somnolence [Recovered/Resolved]
  - Intentional overdose [Recovered/Resolved]

NARRATIVE: CASE EVENT DATE: 20171010
